FAERS Safety Report 6093236-8 (Version None)
Quarter: 2009Q1

REPORT INFORMATION
  Report Type: 
  Country: None (occurrence: None)
  Receive Date: 20090226
  Receipt Date: 20090223
  Transmission Date: 20090719
  Serious: Yes (Hospitalization)
  Sender: FDA-Public Use
  Company Number: GB-WYE-G03174709

PATIENT
  Sex: Male

DRUGS (12)
  1. EFFEXOR [Suspect]
     Indication: DEPRESSION
  2. EFFEXOR [Suspect]
     Dosage: DOSAGE AND FREQUENCY UNSPECIFIED
  3. ASPIRIN [Concomitant]
     Dosage: 75MG, FREQUENCY UNSPECIFIED
  4. ZINC SULFATE [Concomitant]
     Dosage: UNKNOWN
  5. OMEPRAZOLE [Concomitant]
     Dosage: 20MG, FREQUENCY UNSPECIFIED
  6. LORAZEPAM [Concomitant]
     Dosage: DOSAGE UNSPECIFIED, PRN
  7. FOLIC ACID [Concomitant]
     Dosage: 5MG, FREQUENCY UNSPECIFIED
  8. ACETAMINOPHEN W/ CODEINE [Concomitant]
     Dosage: UNKNOWN
  9. OLANZAPINE [Concomitant]
     Dosage: UNKNOWN
  10. LOPERAMIDE HCL [Concomitant]
  11. CALCIUM [Concomitant]
     Dosage: UNKNOWN
  12. METHOTREXATE [Concomitant]

REACTIONS (2)
  - DRUG EFFECT DECREASED [None]
  - ILEOSTOMY [None]
